FAERS Safety Report 10073825 (Version 4)
Quarter: 2014Q2

REPORT INFORMATION
  Report Type: Spontaneous
  Country: JP (occurrence: JP)
  Receive Date: 20140411
  Receipt Date: 20140530
  Transmission Date: 20141212
  Serious: Yes (Hospitalization)
  Sender: FDA-Public Use
  Company Number: JP-TAKEDA-2014TUS002775

PATIENT
  Age: 55 Year
  Sex: Male
  Weight: 58.6 kg

DRUGS (13)
  1. FEBURIC [Suspect]
     Indication: HYPERURICAEMIA
     Dosage: 10 MG, QD
     Route: 048
     Dates: start: 20131206, end: 20140303
  2. LASIX                              /00032601/ [Suspect]
     Indication: OEDEMA
     Dosage: 80 MG, QD
     Route: 048
     Dates: start: 20131109, end: 20140123
  3. LASIX                              /00032601/ [Suspect]
     Dosage: 40 MG, QD
     Route: 048
     Dates: start: 20140124, end: 20140216
  4. LASIX                              /00032601/ [Suspect]
     Dosage: 20 MG, QD
     Route: 048
     Dates: start: 20140217, end: 20140314
  5. LANSOPRAZOLE OD [Concomitant]
     Indication: GASTROOESOPHAGEAL REFLUX DISEASE
     Dosage: 15 MG, QD
     Route: 048
  6. KREMEZIN [Concomitant]
     Indication: RENAL FAILURE CHRONIC
     Dosage: 6 G, QD
     Route: 048
     Dates: start: 20131220
  7. LANDSEN [Concomitant]
     Indication: RESTLESSNESS
     Dosage: 1 MG, QD
     Route: 048
  8. GRAMALIL [Concomitant]
     Indication: RESTLESSNESS
     Dosage: 25 MG, QD
     Route: 048
     Dates: end: 20131226
  9. ZOLPIDEM TARTRATE OD [Concomitant]
     Indication: INSOMNIA
     Dosage: 10 MG, QD
     Route: 048
  10. PREDONINE                          /00016201/ [Concomitant]
     Indication: PYREXIA
     Dosage: 2.5 MG, QD
     Route: 048
     Dates: end: 20131226
  11. YOKUKANSAN [Concomitant]
     Indication: RESTLESSNESS
     Dosage: 7.5 G, QD
     Route: 048
  12. PRECIPITATED CALCIUM CARBONATE [Concomitant]
     Indication: HYPERPHOSPHATAEMIA
     Dosage: 3000 MG, QD
     Route: 048
     Dates: start: 20131109
  13. FERRUM                             /00023505/ [Concomitant]
     Indication: IRON DEFICIENCY ANAEMIA
     Dosage: 100 MG, QD
     Route: 048
     Dates: start: 20131206

REACTIONS (1)
  - Renal disorder [Recovering/Resolving]
